FAERS Safety Report 10157151 (Version 1)
Quarter: 2014Q2

REPORT INFORMATION
  Report Type: Spontaneous
  Country: US (occurrence: US)
  Receive Date: 20140507
  Receipt Date: 20140507
  Transmission Date: 20141212
  Serious: No
  Sender: FDA-Public Use
  Company Number: US-PFIZER INC-2014123991

PATIENT
  Age: 54 Year
  Sex: Female
  Weight: 72.56 kg

DRUGS (4)
  1. XELJANZ [Suspect]
     Indication: RHEUMATOID ARTHRITIS
     Dosage: 5 MG, 2X/DAY
     Dates: start: 20140417
  2. IBUPROFEN [Concomitant]
     Dosage: 800 MG, AS NEEDED
  3. TYLENOL [Concomitant]
     Dosage: 500 MG, AS NEEDED
  4. TRAMADOL [Concomitant]
     Dosage: 50 MG, AS NEEDED

REACTIONS (2)
  - Headache [Unknown]
  - Hypertension [Unknown]
